FAERS Safety Report 25484293 (Version 1)
Quarter: 2025Q2

REPORT INFORMATION
  Report Type: Spontaneous
  Country: US (occurrence: US)
  Receive Date: 20250626
  Receipt Date: 20250626
  Transmission Date: 20250717
  Serious: No
  Sender: SANOFI AVENTIS
  Company Number: US-SA-2025SA177814

PATIENT
  Age: 63 Year
  Sex: Female

DRUGS (2)
  1. DUPIXENT [Suspect]
     Active Substance: DUPILUMAB
     Indication: Dermatitis
     Dosage: 300 MG, QOW
     Route: 058
     Dates: start: 202306
  2. DUPIXENT [Suspect]
     Active Substance: DUPILUMAB
     Indication: Psoriasis

REACTIONS (5)
  - Abdominal discomfort [Unknown]
  - Dry eye [Unknown]
  - Eye pruritus [Unknown]
  - Arthralgia [Unknown]
  - Product use in unapproved indication [Unknown]

NARRATIVE: CASE EVENT DATE: 20230601
